FAERS Safety Report 17514448 (Version 1)
Quarter: 2020Q1

REPORT INFORMATION
  Report Type: Other
  Country: BR (occurrence: BR)
  Receive Date: 20200307
  Receipt Date: 20200307
  Transmission Date: 20200409
  Serious: Yes (Hospitalization)
  Sender: FDA-Public Use
  Company Number: BR-VISTA PHARMACEUTICALS INC.-2081368

PATIENT
  Age: 68 Year
  Sex: Male

DRUGS (1)
  1. SULFAMETHOXAZOLE AND TRIMETHOPRIM [Suspect]
     Active Substance: SULFAMETHOXAZOLE\TRIMETHOPRIM
     Indication: NOCARDIOSIS
     Route: 048

REACTIONS (3)
  - Diarrhoea [Unknown]
  - Self-medication [Unknown]
  - Fixed eruption [Recovered/Resolved]
